FAERS Safety Report 10135495 (Version 2)
Quarter: 2014Q2

REPORT INFORMATION
  Report Type: Report from Study
  Country: FR (occurrence: FR)
  Receive Date: 20140428
  Receipt Date: 20140429
  Transmission Date: 20141212
  Serious: Yes (Death, Hospitalization)
  Sender: FDA-Public Use
  Company Number: PHHY2014FR050993

PATIENT
  Age: 70 Year
  Sex: Female

DRUGS (1)
  1. EVEROLIMUS [Suspect]
     Indication: RENAL CANCER
     Dosage: 10 MG, QD
     Dates: start: 201401, end: 20140222

REACTIONS (1)
  - Neoplasm progression [Fatal]
